FAERS Safety Report 10274998 (Version 4)
Quarter: 2015Q1

REPORT INFORMATION
  Report Type: Spontaneous
  Country: US (occurrence: US)
  Receive Date: 20140703
  Receipt Date: 20150126
  Transmission Date: 20150720
  Serious: Yes (Hospitalization, Other)
  Sender: FDA-Public Use
  Company Number: US-ACTELION-A-NJ2014-100669

PATIENT
  Age: 52 Year
  Sex: Female
  Weight: 107.94 kg

DRUGS (16)
  1. REMODULIN [Suspect]
     Active Substance: TREPROSTINIL
     Indication: PULMONARY ARTERIAL HYPERTENSION
     Dosage: 82 NG/KG, PER MIN
     Route: 042
  2. REMODULIN [Suspect]
     Active Substance: TREPROSTINIL
     Dosage: 61 NG/KG, PER MIN
     Route: 042
  3. BUMEX [Concomitant]
     Active Substance: BUMETANIDE
     Dosage: 3 MG, QD
     Dates: start: 20140619
  4. POTASSIUM CHLORIDE. [Concomitant]
     Active Substance: POTASSIUM CHLORIDE
     Dosage: 40 MEQ, QD
  5. MAGNESIUM OXIDE. [Concomitant]
     Active Substance: MAGNESIUM OXIDE
     Dosage: 800 MG, QD
  6. ALBUTEROL. [Concomitant]
     Active Substance: ALBUTEROL
     Dosage: 3 ML, PRN
  7. TRACLEER [Suspect]
     Active Substance: BOSENTAN\BOSENTAN MONOHYDRATE
     Indication: PULMONARY ARTERIAL HYPERTENSION
     Dosage: 125 MG, BID
     Route: 048
     Dates: start: 2011
  8. COUMADIN [Concomitant]
     Active Substance: WARFARIN SODIUM
     Dosage: 5 MG, QD
  9. IPRATROPIUM [Concomitant]
     Active Substance: IPRATROPIUM
     Dosage: 500 MCG, TID
  10. HEPARIN [Concomitant]
     Active Substance: HEPARIN SODIUM
  11. AMIODARONE [Concomitant]
     Active Substance: AMIODARONE
     Dosage: 200 MG, QD
  12. PERCOCET [Concomitant]
     Active Substance: ACETAMINOPHEN\OXYCODONE HYDROCHLORIDE
     Dosage: UNK, PRN
  13. DILAUDID [Concomitant]
     Active Substance: HYDROMORPHONE HYDROCHLORIDE
     Dosage: 2 MG, PRN
  14. ZOFRAN [Concomitant]
     Active Substance: ONDANSETRON HYDROCHLORIDE
     Dosage: 4 UNK, PRN
  15. ASCORBIC ACID. [Concomitant]
     Active Substance: ASCORBIC ACID
     Dosage: 500 MG, TID
  16. DUONEB [Concomitant]
     Active Substance: ALBUTEROL SULFATE\IPRATROPIUM BROMIDE
     Dosage: UNK, PRN

REACTIONS (9)
  - Abdominal pain [Recovered/Resolved]
  - Nausea [Recovered/Resolved]
  - Incarcerated hernia repair [Unknown]
  - Pseudomonal bacteraemia [Unknown]
  - Acute kidney injury [Unknown]
  - Atrial fibrillation [Unknown]
  - Toxicity to various agents [Recovered/Resolved]
  - Incorrect drug administration rate [Unknown]
  - Vomiting [Recovered/Resolved]

NARRATIVE: CASE EVENT DATE: 201404
